FAERS Safety Report 6732024-3 (Version None)
Quarter: 2010Q2

REPORT INFORMATION
  Report Type: 
  Country: None (occurrence: None)
  Receive Date: 20100519
  Receipt Date: 20100508
  Transmission Date: 20101027
  Serious: Yes (Other)
  Sender: FDA-Public Use
  Company Number: US-JNJFOC-20100506106

PATIENT
  Sex: Male

DRUGS (2)
  1. CHILDREN'S TYLENOL  LIQUID BUBBLEGUM YUM [Suspect]
  2. CHILDREN'S TYLENOL  LIQUID BUBBLEGUM YUM [Suspect]
     Indication: PYREXIA

REACTIONS (3)
  - CONJUNCTIVITIS INFECTIVE [None]
  - EAR INFECTION [None]
  - PRODUCT QUALITY ISSUE [None]
